FAERS Safety Report 8362243-4 (Version None)
Quarter: 2012Q2

REPORT INFORMATION
  Report Type: 
  Country: None (occurrence: None)
  Receive Date: 20120515
  Receipt Date: 20120509
  Transmission Date: 20120825
  Serious: Yes (Life-Threatening, Hospitalization, Other)
  Sender: FDA-Public Use
  Company Number: US-BAYER-2011-112134

PATIENT
  Age: 16 Year
  Sex: Female
  Weight: 86 kg

DRUGS (9)
  1. YAZ [Suspect]
     Indication: MENORRHAGIA
  2. IBUPROFEN (ADVIL) [Concomitant]
  3. SYNTHROID [Concomitant]
  4. CEFZIL [Concomitant]
  5. DEPO-PROVERA [Concomitant]
  6. YAZ [Suspect]
     Indication: CONTRACEPTION
     Dosage: UNK
     Dates: start: 20080320, end: 20081025
  7. DICYCLOMINE [Concomitant]
  8. ZITHROMAX [Concomitant]
  9. LEVAQUIN [Concomitant]
     Route: 042

REACTIONS (12)
  - PULMONARY EMBOLISM [None]
  - CHEST DISCOMFORT [None]
  - FEELING ABNORMAL [None]
  - PNEUMONIA [None]
  - PELVIC PAIN [None]
  - FEAR [None]
  - DYSPNOEA [None]
  - DYSPNOEA EXERTIONAL [None]
  - CHEST PAIN [None]
  - EMOTIONAL DISTRESS [None]
  - ANXIETY [None]
  - PULMONARY FUNCTION TEST ABNORMAL [None]
